FAERS Safety Report 4720206-1 (Version None)
Quarter: 2005Q3

REPORT INFORMATION
  Report Type: 
  Country: None (occurrence: None)
  Receive Date: 20050721
  Receipt Date: 20050404
  Transmission Date: 20060218
  Serious: Yes (Hospitalization)
  Sender: FDA-Public Use
  Company Number: 2005CG00666

PATIENT
  Age: 76 Year
  Sex: Male
  Weight: 64 kg

DRUGS (7)
  1. ZESTRIL [Suspect]
     Route: 048
     Dates: start: 20020101
  2. DISSOLVUROL [Suspect]
     Route: 048
  3. TRACE ELEMENTS [Suspect]
  4. VITAMINS [Suspect]
  5. PLANTS [Suspect]
  6. AMINO ACIDS [Suspect]
  7. KARDEGIC [Concomitant]

REACTIONS (2)
  - HEPATITIS [None]
  - JAUNDICE [None]
